FAERS Safety Report 17206020 (Version 1)
Quarter: 2019Q4

REPORT INFORMATION
  Report Type: Spontaneous
  Country: US (occurrence: US)
  Receive Date: 20191205
  Receipt Date: 20191205
  Transmission Date: 20200122
  Serious: No
  Sender: FDA-Public Use
  Company Number: None

PATIENT
  Age: 59 Year
  Sex: Male

DRUGS (1)
  1. TELMISARTAN 40MG [Suspect]
     Active Substance: TELMISARTAN

REACTIONS (2)
  - Drug ineffective [None]
  - Product substitution issue [None]
